FAERS Safety Report 24625433 (Version 1)
Quarter: 2024Q4

REPORT INFORMATION
  Report Type: Spontaneous
  Country: US (occurrence: None)
  Receive Date: 20241115
  Receipt Date: 20241115
  Transmission Date: 20250115
  Serious: No
  Sender: Public
  Company Number: None

PATIENT
  Age: 72 Year
  Sex: Male
  Weight: 117 kg

DRUGS (1)
  1. PROCHLORPERAZINE [Suspect]
     Active Substance: PROCHLORPERAZINE
     Indication: Nausea

REACTIONS (5)
  - Lethargy [None]
  - Nausea [None]
  - Abdominal pain [None]
  - Encephalopathy [None]
  - Poor quality sleep [None]

NARRATIVE: CASE EVENT DATE: 20240911
